FAERS Safety Report 7239310-1 (Version None)
Quarter: 2011Q1

REPORT INFORMATION
  Report Type: 
  Country: None (occurrence: None)
  Receive Date: 20110119
  Receipt Date: 20110119
  Transmission Date: 20110831
  Serious: Yes (Hospitalization)
  Sender: FDA-Public Use
  Company Number: None

PATIENT

DRUGS (1)
  1. TRIAD STERILE ALCOHOL PREP PAD N/A TRIAD GROUP INC [Suspect]

REACTIONS (3)
  - SKIN INFECTION [None]
  - RASH [None]
  - PRODUCT QUALITY ISSUE [None]
